FAERS Safety Report 17885390 (Version 1)
Quarter: 2020Q2

REPORT INFORMATION
  Report Type: Spontaneous
  Country: US (occurrence: US)
  Receive Date: 20200611
  Receipt Date: 20200611
  Transmission Date: 20200714
  Serious: Yes (Other)
  Sender: FDA-Public Use
  Company Number: None

PATIENT
  Age: 61 Year
  Sex: Female
  Weight: 105 kg

DRUGS (3)
  1. FLUOROURACIL (5-FU) [Suspect]
     Active Substance: FLUOROURACIL
  2. EQUASHIELD CLOSED SYSTEM TRANSFER DEVICE FEMALE LL CONNECTOR SWIVEL [Concomitant]
  3. LEGACY CADD PUMP [Concomitant]

REACTIONS (6)
  - Accidental exposure to product [None]
  - Infusion site pain [None]
  - Device leakage [None]
  - Device malfunction [None]
  - Infusion site irritation [None]
  - Device breakage [None]

NARRATIVE: CASE EVENT DATE: 20200610
